FAERS Safety Report 6966759-4 (Version None)
Quarter: 2010Q3

REPORT INFORMATION
  Report Type: 
  Country: None (occurrence: None)
  Receive Date: 20100906
  Receipt Date: 20100901
  Transmission Date: 20110219
  Serious: Yes (Life-Threatening, Hospitalization)
  Sender: FDA-Public Use
  Company Number: JP-BRISTOL-MYERS SQUIBB COMPANY-15160500

PATIENT
  Age: 76 Year
  Sex: Male

DRUGS (17)
  1. IRBETAN [Suspect]
     Indication: HYPERTENSION
     Route: 048
     Dates: start: 20090912, end: 20091031
  2. NORVASC [Concomitant]
     Indication: HYPERTENSION
     Dates: start: 20090403, end: 20091031
  3. EVIPROSTAT [Concomitant]
     Dates: start: 20090912, end: 20091031
  4. OMEPRAL [Concomitant]
     Dates: start: 20090912, end: 20091031
  5. LIVALO [Concomitant]
     Dates: start: 20090912, end: 20091031
  6. GASMOTIN [Concomitant]
     Dates: start: 20090912, end: 20091031
  7. MYSLEE [Concomitant]
     Dates: start: 20090909, end: 20091013
  8. DOGMATYL [Concomitant]
     Dates: start: 20090912, end: 20091031
  9. MEILAX [Concomitant]
     Dates: start: 20090912, end: 20091013
  10. NEOLAMIN [Concomitant]
     Dates: start: 20090909, end: 20091031
  11. ZOLOFT [Concomitant]
     Dosage: 09SEP09-24SEP09,50MG/D;16OCT09-31OCT09,25MG/D
     Dates: start: 20090909, end: 20091031
  12. URSO 250 [Concomitant]
     Indication: HEPATIC FUNCTION ABNORMAL
     Dates: start: 20091013, end: 20091031
  13. PROHEPARUM [Concomitant]
     Indication: HEPATIC FUNCTION ABNORMAL
     Dates: start: 20091013, end: 20091031
  14. MIRTAZAPINE [Concomitant]
     Dates: start: 20090925, end: 20091015
  15. ASCORBIC ACID [Concomitant]
     Dates: start: 20090909, end: 20091031
  16. NEO-MINOPHAGEN C [Concomitant]
     Indication: HEPATIC FUNCTION ABNORMAL
     Dates: start: 20091020, end: 20091031
  17. PROHEPARUM [Concomitant]
     Dates: start: 20091013, end: 20091031

REACTIONS (2)
  - HEPATIC FUNCTION ABNORMAL [None]
  - RESPIRATORY FAILURE [None]
